FAERS Safety Report 21998166 (Version 1)
Quarter: 2023Q1

REPORT INFORMATION
  Report Type: Spontaneous
  Country: US (occurrence: US)
  Receive Date: 20230216
  Receipt Date: 20230216
  Transmission Date: 20230417
  Serious: Yes (Other)
  Sender: FDA-Public Use
  Company Number: US-drreddys-LIT/USA/23/0161077

PATIENT
  Age: 40 Year
  Sex: Male

DRUGS (6)
  1. SORAFENIB [Suspect]
     Active Substance: SORAFENIB
     Indication: Erdheim-Chester disease
  2. CLADRIBINE [Concomitant]
     Active Substance: CLADRIBINE
     Indication: Erdheim-Chester disease
  3. HYDROXYUREA [Concomitant]
     Active Substance: HYDROXYUREA
     Indication: Erdheim-Chester disease
  4. METHOTREXATE [Concomitant]
     Active Substance: METHOTREXATE
     Indication: Erdheim-Chester disease
  5. TOCILIZUMAB [Concomitant]
     Active Substance: TOCILIZUMAB
     Indication: Erdheim-Chester disease
  6. COBIMETINIB [Concomitant]
     Active Substance: COBIMETINIB
     Indication: Erdheim-Chester disease

REACTIONS (1)
  - Drug ineffective for unapproved indication [Unknown]
